FAERS Safety Report 9224990 (Version 1)
Quarter: 2013Q2

REPORT INFORMATION
  Report Type: Spontaneous
  Country: US (occurrence: US)
  Receive Date: 20130411
  Receipt Date: 20130411
  Transmission Date: 20140414
  Serious: No
  Sender: FDA-Public Use
  Company Number: US-BRISTOL-MYERS SQUIBB COMPANY-17175266

PATIENT
  Age: 41 Year
  Sex: Female

DRUGS (1)
  1. BELATACEPT [Suspect]
     Indication: RENAL TRANSPLANT

REACTIONS (1)
  - Kidney transplant rejection [Unknown]
